FAERS Safety Report 25886100 (Version 1)
Quarter: 2025Q4

REPORT INFORMATION
  Report Type: Spontaneous
  Country: US (occurrence: US)
  Receive Date: 20251006
  Receipt Date: 20251006
  Transmission Date: 20260117
  Serious: No
  Sender: GALDERMA
  Company Number: US-GALDERMA-US2025017370

PATIENT

DRUGS (1)
  1. NEMLUVIO [Suspect]
     Active Substance: NEMOLIZUMAB-ILTO
     Indication: Dermatitis atopic
     Dosage: 60 MILLIGRAM,LOADING DOSE
     Route: 058
     Dates: start: 20250828, end: 20250828

REACTIONS (5)
  - Rash [Recovered/Resolved]
  - Eczema [Recovered/Resolved]
  - Dry skin [Recovered/Resolved]
  - Oral herpes [Recovered/Resolved]
  - Hypersensitivity [Recovered/Resolved]

NARRATIVE: CASE EVENT DATE: 20250101
